FAERS Safety Report 25586028 (Version 1)
Quarter: 2025Q3

REPORT INFORMATION
  Report Type: Spontaneous
  Country: US (occurrence: US)
  Receive Date: 20250721
  Receipt Date: 20250721
  Transmission Date: 20251020
  Serious: Yes (Other)
  Sender: AMERICAN REGENT
  Company Number: US-AMERICAN REGENT INC-2025002774

PATIENT
  Sex: Female

DRUGS (2)
  1. VENOFER [Suspect]
     Active Substance: IRON SUCROSE
     Indication: Iron deficiency
  2. VENOFER [Suspect]
     Active Substance: IRON SUCROSE
     Indication: Blood disorder

REACTIONS (8)
  - Gastrointestinal disorder [Recovered/Resolved]
  - Foetal movement disorder [Recovered/Resolved]
  - Maternal exposure during pregnancy [Unknown]
  - Burning sensation [Recovered/Resolved]
  - Throat tightness [Recovered/Resolved]
  - Urticaria [Recovered/Resolved]
  - Chest discomfort [Recovered/Resolved]
  - Chest pain [Recovered/Resolved]
